FAERS Safety Report 22344482 (Version 1)
Quarter: 2023Q2

REPORT INFORMATION
  Report Type: Spontaneous
  Country: US (occurrence: US)
  Receive Date: 20230519
  Receipt Date: 20230519
  Transmission Date: 20230721
  Serious: Yes (Hospitalization)
  Sender: FDA-Public Use
  Company Number: US-MYLANLABS-2023M1050845

PATIENT
  Age: 72 Year
  Sex: Male

DRUGS (2)
  1. ASCORBIC ACID [Suspect]
     Active Substance: ASCORBIC ACID
     Indication: Metastatic carcinoma of the bladder
     Dosage: 2 GRAM, QD (8-DAY COURSE OF AN ALTERNATIVE CHEMOTHERAPEUTIC REGIMEN)
     Route: 048
  2. ASCORBIC ACID [Suspect]
     Active Substance: ASCORBIC ACID
     Indication: Metastatic carcinoma of the bladder
     Dosage: 50 GRAM, QD (8-DAY COURSE OF AN ALTERNATIVE CHEMOTHERAPEUTIC REGIMEN)
     Route: 042

REACTIONS (5)
  - Pancreatitis [Unknown]
  - Ketoacidosis [Unknown]
  - Crystal nephropathy [Not Recovered/Not Resolved]
  - Acute kidney injury [Not Recovered/Not Resolved]
  - Renal tubular necrosis [Not Recovered/Not Resolved]
